FAERS Safety Report 6427592-5 (Version None)
Quarter: 2009Q4

REPORT INFORMATION
  Report Type: 
  Country: None (occurrence: None)
  Receive Date: 20091104
  Receipt Date: 20091023
  Transmission Date: 20100525
  Serious: Yes (Other)
  Sender: FDA-Public Use
  Company Number: FR-PFIZER INC-2009272888

PATIENT
  Age: 64 Year
  Sex: Female
  Weight: 84 kg

DRUGS (4)
  1. LYRICA [Suspect]
     Indication: PARAESTHESIA
     Dosage: 300, 2 TABLETS PER DAY
     Dates: start: 20080605
  2. LYRICA [Suspect]
     Indication: TREMOR
  3. PREVISCAN [Suspect]
     Indication: PHLEBITIS
     Dosage: 1 TABLET/DAY
     Route: 048
     Dates: start: 20061001, end: 20090609
  4. PREVISCAN [Suspect]
     Indication: PULMONARY EMBOLISM

REACTIONS (3)
  - BLOOD ALKALINE PHOSPHATASE INCREASED [None]
  - GAMMA-GLUTAMYLTRANSFERASE INCREASED [None]
  - TRANSAMINASES INCREASED [None]
